FAERS Safety Report 6091584-9 (Version None)
Quarter: 2009Q1

REPORT INFORMATION
  Report Type: 
  Country: None (occurrence: None)
  Receive Date: 20090225
  Receipt Date: 20080211
  Transmission Date: 20090719
  Serious: No
  Sender: FDA-Public Use
  Company Number: A0706388A

PATIENT
  Age: 78 Year
  Sex: Male

DRUGS (5)
  1. VALTREX [Suspect]
     Indication: GENITAL HERPES
     Dosage: 500CAPL TWICE PER DAY
     Route: 048
  2. DIOVAN [Concomitant]
  3. NORVASC [Concomitant]
  4. ZOCOR [Concomitant]
  5. LANOXIN [Concomitant]

REACTIONS (4)
  - BLOOD PRESSURE INCREASED [None]
  - EMOTIONAL DISTRESS [None]
  - FEAR [None]
  - TACHYCARDIA [None]
